FAERS Safety Report 23763294 (Version 1)
Quarter: 2024Q2

REPORT INFORMATION
  Report Type: Spontaneous
  Country: US (occurrence: US)
  Receive Date: 20240419
  Receipt Date: 20240419
  Transmission Date: 20240716
  Serious: Yes (Life-Threatening)
  Sender: FDA-Public Use
  Company Number: US-UniquePharma-US-2024UPLSPO00011

PATIENT
  Sex: Female

DRUGS (1)
  1. ATENOLOL [Suspect]
     Active Substance: ATENOLOL
     Indication: Hypertension
     Route: 065

REACTIONS (5)
  - Blood pressure fluctuation [Unknown]
  - Hypotension [Unknown]
  - Drug ineffective [Unknown]
  - Suspected product quality issue [Unknown]
  - Product substitution issue [Unknown]
